FAERS Safety Report 19777592 (Version 1)
Quarter: 2021Q3

REPORT INFORMATION
  Report Type: Spontaneous
  Country: US (occurrence: US)
  Receive Date: 20210831
  Receipt Date: 20210831
  Transmission Date: 20211014
  Serious: Yes (Hospitalization)
  Sender: FDA-Public Use
  Company Number: None

PATIENT
  Age: 79 Year
  Sex: Male

DRUGS (6)
  1. ESBRIET [Suspect]
     Active Substance: PIRFENIDONE
  2. METFORMIN TAB 1000MG [Concomitant]
  3. ATORVASTATIN TAB 10MG [Concomitant]
  4. LANTUS SOLOS INJ 100/ML [Concomitant]
  5. ABIRATERONE ACETATE. [Concomitant]
     Active Substance: ABIRATERONE ACETATE
  6. NOVOLIN N INJ 100 UNIT [Concomitant]

REACTIONS (5)
  - Decreased appetite [None]
  - Dehydration [None]
  - Vomiting [None]
  - Nausea [None]
  - Therapy interrupted [None]

NARRATIVE: CASE EVENT DATE: 202108
